FAERS Safety Report 11059873 (Version 1)
Quarter: 2015Q2

REPORT INFORMATION
  Report Type: Spontaneous
  Country: US (occurrence: US)
  Receive Date: 20150423
  Receipt Date: 20150423
  Transmission Date: 20150821
  Serious: Yes (Other)
  Sender: FDA-Public Use
  Company Number: US-PFIZER INC-2015133126

PATIENT
  Age: 32 Year
  Sex: Male
  Weight: 75 kg

DRUGS (10)
  1. ANDROGEL [Concomitant]
     Active Substance: TESTOSTERONE
     Dosage: UNK, 20.25 MG/1.28GM (1.62%) DAILY
  2. CIALIS [Concomitant]
     Active Substance: TADALAFIL
     Dosage: 5 MG, AS NEEDED
     Route: 048
  3. ATIVAN [Concomitant]
     Active Substance: LORAZEPAM
     Dosage: 1 MG, 1X/DAY
  4. CYANOCOBALAMIN. [Concomitant]
     Active Substance: CYANOCOBALAMIN
     Dosage: (1000 MCG/ML) 1 ML INTRAMUSCULAR (IM) MONTHLY SYRINGE 25 G X 1^ 3ML, MONTHLY
     Route: 030
  5. LOPERAMIDE HCL [Concomitant]
     Active Substance: LOPERAMIDE HYDROCHLORIDE
     Indication: DIARRHOEA
     Dosage: 2 MG, AS NEEDED
     Route: 048
  6. ADDERALL [Concomitant]
     Active Substance: AMPHETAMINE ASPARTATE\AMPHETAMINE SULFATE\DEXTROAMPHETAMINE SACCHARATE\DEXTROAMPHETAMINE SULFATE
     Dosage: 20 MG, 2X/DAY
     Route: 048
  7. STRIBILD [Concomitant]
     Active Substance: COBICISTAT\ELVITEGRAVIR\EMTRICITABINE\TENOFOVIR DISOPROXIL FUMARATE
     Dosage: UNK MG, 1X/DAY (COBICISTAT 150MG, ELVITEGRAVIR 150MG, EMTRICITABINE, TENOFOVIR DISOPROXIL FUMARATE)
     Route: 048
  8. CHANTIX [Suspect]
     Active Substance: VARENICLINE TARTRATE
     Indication: SMOKING CESSATION THERAPY
     Dosage: UNK,
  9. AMOXICILLIN. [Concomitant]
     Active Substance: AMOXICILLIN
     Dosage: 500 MG, 3X/DAY (FOR SEVEN DAYS)
     Route: 048
  10. DEPO-TESTOSTERONE [Concomitant]
     Active Substance: TESTOSTERONE CYPIONATE
     Dosage: 200 MG/ML, (1 CC IM EVERY 14 DAYS)
     Route: 030

REACTIONS (8)
  - Major depression [Unknown]
  - Syphilis [Unknown]
  - Drug abuse [Unknown]
  - HIV infection [Unknown]
  - Weight decreased [Unknown]
  - Hypogonadism [Unknown]
  - Arthralgia [Unknown]
  - Erectile dysfunction [Unknown]
